FAERS Safety Report 5244866-4 (Version None)
Quarter: 2007Q1

REPORT INFORMATION
  Report Type: 
  Country: None (occurrence: None)
  Receive Date: 20070221
  Receipt Date: 20070221
  Transmission Date: 20070707
  Serious: Yes (Other)
  Sender: FDA-Public Use
  Company Number: None

PATIENT
  Sex: Male
  Weight: 110.18 kg

DRUGS (22)
  1. ROSUVASTATIN [Suspect]
     Indication: DYSLIPIDAEMIA
     Dosage: 10 MG QD
     Dates: start: 20060825, end: 20061109
  2. AMOXICILLIN/CLAV K [Concomitant]
  3. ASCORBIC ACID [Concomitant]
  4. ATENOLOL [Concomitant]
  5. ATORVASTATIN [Concomitant]
  6. CHLORPHENIRAMINE MALEATE [Concomitant]
  7. CLOPIDOGREL BISULFATE [Concomitant]
  8. FLUNISOLIDE [Concomitant]
  9. FOLIC ACID [Concomitant]
  10. FUROSEMIDE [Concomitant]
  11. HYDROXYZINE [Concomitant]
  12. LORATADINE [Concomitant]
  13. LORAZEPAM [Concomitant]
  14. MIRTAZAPINE [Concomitant]
  15. MULTIVITAMIN/MINERALS THERAPEUT [Concomitant]
  16. OLANZAPINE [Concomitant]
  17. PREDNISONE [Concomitant]
  18. . [Concomitant]
  19. TOPIRAMATE [Concomitant]
  20. VENLAFAXINE HCL [Concomitant]
  21. HERBAL/OTC [Concomitant]
  22. OXYCODONE/ACETAMINOPHEN [Concomitant]

REACTIONS (1)
  - MYALGIA [None]
